FAERS Safety Report 4277362-1 (Version None)
Quarter: 2004Q1

REPORT INFORMATION
  Report Type: 
  Country: None (occurrence: None)
  Receive Date: 20040122
  Receipt Date: 20040114
  Transmission Date: 20041129
  Serious: Yes (Hospitalization)
  Sender: FDA-Public Use
  Company Number: PHRM2004FR00525

PATIENT
  Age: 63 Year
  Sex: Female

DRUGS (3)
  1. VOLTAREN [Suspect]
     Indication: ERYSIPELAS
     Dosage: 50 MG, TID
     Route: 048
     Dates: start: 20031107, end: 20031110
  2. AMOXICILLIN [Concomitant]
     Indication: ERYSIPELAS
     Dosage: 1000 MG, TID
     Route: 048
     Dates: start: 20031107, end: 20031110
  3. TEGRETOL [Concomitant]

REACTIONS (7)
  - DERMATITIS BULLOUS [None]
  - LYMPHANGITIS [None]
  - NECROTISING FASCIITIS [None]
  - OEDEMA [None]
  - PETECHIAE [None]
  - PULSE ABSENT [None]
  - RASH ERYTHEMATOUS [None]
